FAERS Safety Report 9922369 (Version 1)
Quarter: 2014Q1

REPORT INFORMATION
  Report Type: Spontaneous
  Country: US (occurrence: None)
  Receive Date: 20140224
  Receipt Date: 20140224
  Transmission Date: 20141002
  Serious: Yes (Other)
  Sender: FDA-Public Use
  Company Number: None

PATIENT
  Age: 53 Day
  Sex: Female
  Weight: 63.96 kg

DRUGS (1)
  1. AMPHETAMINE (+) DEXTROAMPHETAMINE [Suspect]
     Indication: ATTENTION DEFICIT/HYPERACTIVITY DISORDER
     Dosage: TAKE 1 PILL TWICE DAILY
     Route: 048
     Dates: start: 20140214, end: 20140219

REACTIONS (4)
  - Fatigue [None]
  - Dysarthria [None]
  - Vision blurred [None]
  - Dysphonia [None]
